FAERS Safety Report 21083658 (Version 3)
Quarter: 2022Q3

REPORT INFORMATION
  Report Type: Report from Study
  Country: JP (occurrence: JP)
  Receive Date: 20220714
  Receipt Date: 20220722
  Transmission Date: 20221027
  Serious: Yes (Death, Other)
  Sender: FDA-Public Use
  Company Number: JP-ONO-2021JP029416

PATIENT
  Age: 69 Year
  Sex: Female
  Weight: 34.9 kg

DRUGS (34)
  1. BRAFTOVI [Suspect]
     Active Substance: ENCORAFENIB
     Indication: Colon cancer
     Dosage: 225 MG, EVERYDAY
     Route: 048
     Dates: start: 20210624, end: 20210818
  2. BRAFTOVI [Suspect]
     Active Substance: ENCORAFENIB
     Dosage: 150 MG, EVERYDAY
     Route: 048
     Dates: start: 20210819, end: 20211031
  3. BRAFTOVI [Suspect]
     Active Substance: ENCORAFENIB
     Dosage: 150 MG, EVERYDAY
     Route: 048
     Dates: start: 20211118, end: 20211124
  4. MEKTOVI [Suspect]
     Active Substance: BINIMETINIB
     Indication: Colon cancer
     Dosage: 60 MG, EVERYDAY
     Route: 048
     Dates: start: 20210624, end: 20210721
  5. MEKTOVI [Suspect]
     Active Substance: BINIMETINIB
     Dosage: 30 MG, EVERYDAY
     Route: 048
     Dates: start: 20210812, end: 20211028
  6. MEKTOVI [Suspect]
     Active Substance: BINIMETINIB
     Dosage: 30 MG, EVERYDAY
     Route: 048
     Dates: start: 20211118, end: 20211119
  7. ANAMORELIN HYDROCHLORIDE [Suspect]
     Active Substance: ANAMORELIN HYDROCHLORIDE
     Indication: Cachexia
     Dosage: 50 MG, EVERYDAY
     Route: 048
     Dates: start: 20211028, end: 20211104
  8. ERBITUX [Concomitant]
     Active Substance: CETUXIMAB
     Indication: Colon cancer
     Dosage: 400 MG/M2, EVERYDAY
     Route: 065
     Dates: start: 20210624, end: 20210624
  9. ERBITUX [Concomitant]
     Active Substance: CETUXIMAB
     Dosage: 250 MG/M2, EVERYDAY
     Route: 065
     Dates: start: 20210701, end: 20210701
  10. ERBITUX [Concomitant]
     Active Substance: CETUXIMAB
     Dosage: 250 MG/M2, EVERYDAY
     Route: 065
     Dates: start: 20210708, end: 20210708
  11. ERBITUX [Concomitant]
     Active Substance: CETUXIMAB
     Dosage: 250 MG/M2, EVERYDAY
     Route: 065
     Dates: start: 20210715, end: 20210715
  12. ERBITUX [Concomitant]
     Active Substance: CETUXIMAB
     Dosage: 250 MG/M2, EVERYDAY
     Route: 065
     Dates: start: 20210721, end: 20210721
  13. ERBITUX [Concomitant]
     Active Substance: CETUXIMAB
     Dosage: 400 MG/M2, EVERYDAY
     Route: 065
     Dates: start: 20210812, end: 20210812
  14. ERBITUX [Concomitant]
     Active Substance: CETUXIMAB
     Dosage: 250 MG/M2, EVERYDAY
     Route: 065
     Dates: start: 20210819, end: 20210819
  15. ERBITUX [Concomitant]
     Active Substance: CETUXIMAB
     Dosage: 250 MG/M2, EVERYDAY
     Route: 065
     Dates: start: 20210826, end: 20210826
  16. ERBITUX [Concomitant]
     Active Substance: CETUXIMAB
     Dosage: 250 MG/M2, EVERYDAY
     Route: 065
     Dates: start: 20210902, end: 20210902
  17. ERBITUX [Concomitant]
     Active Substance: CETUXIMAB
     Dosage: 250 MG/M2, EVERYDAY
     Route: 065
     Dates: start: 20210909, end: 20210909
  18. ERBITUX [Concomitant]
     Active Substance: CETUXIMAB
     Dosage: 250 MG/M2, EVERYDAY
     Route: 065
     Dates: start: 20210916, end: 20210916
  19. ERBITUX [Concomitant]
     Active Substance: CETUXIMAB
     Dosage: 250 MG/M2, EVERYDAY
     Route: 065
     Dates: start: 20210924, end: 20210924
  20. ERBITUX [Concomitant]
     Active Substance: CETUXIMAB
     Dosage: 250 MG/M2, EVERYDAY
     Route: 065
     Dates: start: 20211007, end: 20211007
  21. ERBITUX [Concomitant]
     Active Substance: CETUXIMAB
     Dosage: 250 MG/M2, EVERYDAY
     Route: 065
     Dates: start: 20211014, end: 20211014
  22. ERBITUX [Concomitant]
     Active Substance: CETUXIMAB
     Dosage: 250 MG/M2, EVERYDAY
     Route: 065
     Dates: start: 20211021, end: 20211021
  23. ERBITUX [Concomitant]
     Active Substance: CETUXIMAB
     Dosage: 250 MG/M2, EVERYDAY
     Route: 065
     Dates: start: 20211028, end: 20211028
  24. ERBITUX [Concomitant]
     Active Substance: CETUXIMAB
     Dosage: 250 MG/M2, EVERYDAY
     Route: 065
     Dates: start: 20211118, end: 20211118
  25. MITIGLINIDE [Concomitant]
     Active Substance: MITIGLINIDE
     Dosage: 15 MG, EVERYDAY
     Route: 048
  26. VONOPRAZAN FUMARATE [Concomitant]
     Active Substance: VONOPRAZAN FUMARATE
     Indication: Prophylaxis
     Dosage: 10 MG, EVERYDAY
     Route: 048
  27. LINAGLIPTIN [Concomitant]
     Active Substance: LINAGLIPTIN
     Dosage: 5 MG, EVERYDAY
     Route: 048
  28. AZILSARTAN KAMEDOXOMIL [Concomitant]
     Active Substance: AZILSARTAN KAMEDOXOMIL
     Dosage: 20 MG, EVERYDAY
     Route: 048
  29. AMLODIPINE BESYLATE [Concomitant]
     Active Substance: AMLODIPINE BESYLATE
     Dosage: 5 MG, EVERYDAY
     Route: 048
  30. MINOCYCLINE HYDROCHLORIDE [Concomitant]
     Active Substance: MINOCYCLINE HYDROCHLORIDE
     Indication: Prophylaxis
     Dosage: 100 MG, EVERYDAY
     Route: 048
  31. METHYLCOBALAMIN [Concomitant]
     Active Substance: METHYLCOBALAMIN
     Dosage: 1500 UG, EVERYDAY
     Route: 048
  32. MAGNESIUM OXIDE [Concomitant]
     Active Substance: MAGNESIUM OXIDE
     Indication: Prophylaxis
     Dosage: 750 MG, EVERYDAY
     Route: 048
  33. METOCLOPRAMIDE [Concomitant]
     Active Substance: METOCLOPRAMIDE
     Indication: Prophylaxis
     Dosage: 15 MG, EVERYDAY
     Route: 048
  34. LINZESS [Concomitant]
     Active Substance: LINACLOTIDE
     Indication: Prophylaxis
     Dosage: 0.50 MG, EVERYDAY
     Route: 048

REACTIONS (4)
  - Neoplasm progression [Fatal]
  - Malaise [Not Recovered/Not Resolved]
  - Decreased appetite [Recovering/Resolving]
  - Underdose [Unknown]

NARRATIVE: CASE EVENT DATE: 20210624
